FAERS Safety Report 22605557 (Version 1)
Quarter: 2023Q2

REPORT INFORMATION
  Report Type: Spontaneous
  Country: DE (occurrence: DE)
  Receive Date: 20230615
  Receipt Date: 20230615
  Transmission Date: 20230722
  Serious: Yes (Hospitalization)
  Sender: FDA-Public Use
  Company Number: DE-TEVA-2023-DE-2896705

PATIENT
  Age: 16 Year
  Sex: Female
  Weight: 112 kg

DRUGS (2)
  1. IBUPROFEN [Suspect]
     Active Substance: IBUPROFEN
     Indication: Dysmenorrhoea
     Dosage: 46 MG/KG DAILY; SHE HAD TAKEN 12 TO 14 TABLETS OF IBUPROFEN (46 MG/KG/DAY) A FEW DAYS AGO
     Route: 065
  2. IBUPROFEN [Suspect]
     Active Substance: IBUPROFEN
     Indication: Analgesic therapy

REACTIONS (3)
  - Nephropathy toxic [Recovered/Resolved]
  - Overdose [Unknown]
  - Intentional product misuse [Unknown]
